FAERS Safety Report 7651193-4 (Version None)
Quarter: 2011Q3

REPORT INFORMATION
  Report Type: 
  Country: None (occurrence: None)
  Receive Date: 20110802
  Receipt Date: 20110728
  Transmission Date: 20111222
  Serious: Yes (Hospitalization)
  Sender: FDA-Public Use
  Company Number: FR-ABBOTT-11P-056-0842066-00

PATIENT
  Sex: Male

DRUGS (5)
  1. REYATAZ [Suspect]
     Indication: HIV INFECTION
     Route: 048
  2. TRILEPTAL [Suspect]
     Indication: PRODUCT USED FOR UNKNOWN INDICATION
     Route: 048
  3. ABILIFY [Suspect]
     Indication: PRODUCT USED FOR UNKNOWN INDICATION
     Route: 048
  4. NORVIR [Suspect]
     Indication: HIV INFECTION
     Route: 048
  5. TRUVADA [Suspect]
     Indication: HIV INFECTION
     Route: 048

REACTIONS (1)
  - RENAL COLIC [None]
